FAERS Safety Report 9148399 (Version 4)
Quarter: 2013Q3

REPORT INFORMATION
  Report Type: Spontaneous
  Country: GB (occurrence: GB)
  Receive Date: 20130308
  Receipt Date: 20130705
  Transmission Date: 20140515
  Serious: Yes (Other)
  Sender: FDA-Public Use
  Company Number: PHFR2013GB001553

PATIENT
  Age: 43 Year
  Sex: Female

DRUGS (1)
  1. GLIVEC [Suspect]
     Indication: CHRONIC MYELOID LEUKAEMIA
     Dosage: 400 MG, DAILY
     Route: 048
     Dates: start: 200212

REACTIONS (4)
  - Rib fracture [Recovering/Resolving]
  - Chest pain [Recovered/Resolved]
  - Vitamin D decreased [Recovering/Resolving]
  - Osteoporosis [Unknown]
